FAERS Safety Report 25893473 (Version 2)
Quarter: 2025Q4

REPORT INFORMATION
  Report Type: Spontaneous
  Country: US (occurrence: US)
  Receive Date: 20251008
  Receipt Date: 20251031
  Transmission Date: 20260118
  Serious: No
  Sender: GSK
  Company Number: US-GSK-US2025AMR118753

PATIENT
  Sex: Female

DRUGS (1)
  1. NUCALA [Suspect]
     Active Substance: MEPOLIZUMAB
     Indication: Asthma
     Dosage: 100 MG, Q4W
     Dates: start: 20250829

REACTIONS (1)
  - Bronchitis [Recovering/Resolving]
